FAERS Safety Report 11016691 (Version 2)
Quarter: 2015Q2

REPORT INFORMATION
  Report Type: Spontaneous
  Country: US (occurrence: US)
  Receive Date: 20150412
  Receipt Date: 20150525
  Transmission Date: 20150821
  Serious: No
  Sender: FDA-Public Use
  Company Number: US-JNJFOC-20130415002

PATIENT
  Sex: Female

DRUGS (8)
  1. ORTHO MICRONOR [Suspect]
     Active Substance: NORETHINDRONE
     Indication: CONTRACEPTION
     Route: 048
  2. YAZ [Suspect]
     Active Substance: DROSPIRENONE\ETHINYL ESTRADIOL
     Indication: DRUG THERAPY
     Route: 048
  3. LOESTRIN NOS [Suspect]
     Active Substance: ETHINYL ESTRADIOL\NORETHINDRONE ACETATE
     Indication: CONTRACEPTION
     Route: 048
  4. ORTHO MICRONOR [Suspect]
     Active Substance: NORETHINDRONE
     Indication: DRUG THERAPY
     Route: 048
  5. LOESTRIN NOS [Suspect]
     Active Substance: ETHINYL ESTRADIOL\NORETHINDRONE ACETATE
     Indication: DRUG THERAPY
     Route: 048
  6. VELIVET [Suspect]
     Active Substance: DESOGESTREL\ETHINYL ESTRADIOL
     Indication: DRUG THERAPY
     Route: 048
  7. VELIVET [Suspect]
     Active Substance: DESOGESTREL\ETHINYL ESTRADIOL
     Indication: CONTRACEPTION
     Route: 048
  8. YAZ [Suspect]
     Active Substance: DROSPIRENONE\ETHINYL ESTRADIOL
     Indication: CONTRACEPTION
     Route: 048

REACTIONS (4)
  - Abdominal pain [Unknown]
  - Hypersensitivity [Recovered/Resolved]
  - Alopecia [Unknown]
  - Product use issue [Unknown]
